FAERS Safety Report 6019248-8 (Version None)
Quarter: 2008Q4

REPORT INFORMATION
  Report Type: 
  Country: None (occurrence: None)
  Receive Date: 20081224
  Receipt Date: 20081215
  Transmission Date: 20090506
  Serious: Yes (Hospitalization)
  Sender: FDA-Public Use
  Company Number: US-ELI_LILLY_AND_COMPANY-US200812000242

PATIENT
  Sex: Male
  Weight: 58.957 kg

DRUGS (16)
  1. PEMETREXED [Suspect]
     Indication: NON-SMALL CELL LUNG CANCER
     Dosage: 500 MG/M2, OTHER
     Route: 042
     Dates: start: 20080731
  2. FOLIC ACID [Concomitant]
     Dates: start: 20080731
  3. VITAMIN B-12 [Concomitant]
     Dates: start: 20080731
  4. DEXAMETHASONE [Concomitant]
     Dates: start: 20080731
  5. ADVAIR DISKUS 250/50 [Concomitant]
     Indication: ASTHMA
     Dates: start: 20080807
  6. ASPIRIN [Concomitant]
     Indication: ANTICOAGULANT THERAPY
     Dates: start: 20080807
  7. COREG [Concomitant]
     Indication: HYPERTENSION
     Dates: start: 20080808
  8. COLCHICINE [Concomitant]
     Indication: ARTHRITIS
     Dates: start: 20080812
  9. LEXAPRO [Concomitant]
     Indication: DEPRESSION
     Dates: start: 20080812
  10. MEGACE [Concomitant]
     Indication: ANOREXIA
     Dates: start: 20080821
  11. OXYCONTIN [Concomitant]
     Indication: ANALGESIA
     Dates: start: 20080807
  12. SENNA PLUS [Concomitant]
     Indication: CONSTIPATION
  13. COUMADIN [Concomitant]
     Indication: ANTICOAGULANT THERAPY
     Dates: start: 20080807
  14. TIZANIDINE HCL [Concomitant]
     Indication: MUSCLE RELAXANT THERAPY
     Dates: start: 20080807
  15. PERCOCET [Concomitant]
     Indication: PAIN
     Dates: start: 20080808
  16. NEURONTIN [Concomitant]
     Indication: NEURALGIA
     Dates: start: 20080812

REACTIONS (8)
  - ANAEMIA [None]
  - HYPOTENSION [None]
  - INFECTION [None]
  - LEUKOPENIA [None]
  - OVERDOSE [None]
  - SEPSIS [None]
  - SYNCOPE [None]
  - THROMBOCYTOPENIA [None]
